FAERS Safety Report 7490918-8 (Version None)
Quarter: 2011Q2

REPORT INFORMATION
  Report Type: 
  Country: None (occurrence: None)
  Receive Date: 20110517
  Receipt Date: 20110517
  Transmission Date: 20111010
  Serious: No
  Sender: FDA-Public Use
  Company Number: None

PATIENT

DRUGS (1)
  1. BUPIVACAINE/DEXTROSE AMPULE 7.5/82.5MG/ML BRAUN [Suspect]
     Indication: SPINAL ANAESTHESIA
     Dosage: EPIDURAL
     Route: 008

REACTIONS (1)
  - THERAPEUTIC RESPONSE DECREASED [None]
